FAERS Safety Report 21201482 (Version 1)
Quarter: 2022Q3

REPORT INFORMATION
  Report Type: Spontaneous
  Country: US (occurrence: None)
  Receive Date: 20220810
  Receipt Date: 20220810
  Transmission Date: 20221027
  Serious: Yes (Other)
  Sender: FDA-Public Use
  Company Number: None

PATIENT
  Age: 60 Year
  Sex: Female
  Weight: 67.5 kg

DRUGS (5)
  1. HYDROGEN PEROXIDE [Suspect]
     Active Substance: HYDROGEN PEROXIDE
     Indication: Tooth discolouration
     Dosage: OTHER QUANTITY : 1 GEL;?OTHER ROUTE : APPLY TO SURFACE OF THE TEETH;?
     Route: 050
     Dates: start: 20210907, end: 20211201
  2. LEVOTHYROXINE [Concomitant]
     Active Substance: LEVOTHYROXINE
  3. TRAMADOL [Concomitant]
     Active Substance: TRAMADOL
  4. ALBUTEROL [Concomitant]
     Active Substance: ALBUTEROL
  5. IBUPROFEN [Concomitant]
     Active Substance: IBUPROFEN

REACTIONS (3)
  - Ear discomfort [None]
  - Lymphadenopathy [None]
  - Lymphadenopathy [None]

NARRATIVE: CASE EVENT DATE: 20210907
